FAERS Safety Report 18144892 (Version 1)
Quarter: 2020Q3

REPORT INFORMATION
  Report Type: Spontaneous
  Country: US (occurrence: US)
  Receive Date: 20200813
  Receipt Date: 20200813
  Transmission Date: 20201103
  Serious: No
  Sender: FDA-Public Use
  Company Number: US-GW PHARMA-202008USGW02746

PATIENT

DRUGS (6)
  1. ZONEGRAN [Concomitant]
     Active Substance: ZONISAMIDE
     Indication: PRODUCT USED FOR UNKNOWN INDICATION
     Dosage: UNK
     Route: 065
  2. EPIDIOLEX [Suspect]
     Active Substance: CANNABIDIOL
     Indication: PARTIAL SEIZURES
     Dosage: 250 MILLIGRAM, BID
     Route: 048
     Dates: start: 20200324
  3. EPIDIOLEX [Suspect]
     Active Substance: CANNABIDIOL
     Indication: SIMPLE PARTIAL SEIZURES
  4. MIRALAX [Concomitant]
     Active Substance: POLYETHYLENE GLYCOL 3350
     Indication: PRODUCT USED FOR UNKNOWN INDICATION
     Dosage: UNK
     Route: 065
  5. SENOKOT [Concomitant]
     Active Substance: SENNOSIDES
     Indication: PRODUCT USED FOR UNKNOWN INDICATION
     Dosage: UNK
     Route: 065
  6. EPIDIOLEX [Suspect]
     Active Substance: CANNABIDIOL
     Indication: EPILEPSY

REACTIONS (6)
  - Seizure [Recovering/Resolving]
  - Middle insomnia [Recovering/Resolving]
  - Dyspnoea [Recovering/Resolving]
  - Product use in unapproved indication [Not Recovered/Not Resolved]
  - Tremor [Recovering/Resolving]
  - Heart rate increased [Recovering/Resolving]

NARRATIVE: CASE EVENT DATE: 20200324
